FAERS Safety Report 8261879 (Version 2)
Quarter: 2012Q4

REPORT INFORMATION
  Report Type: 
  Country: DE (occurrence: ES)
  Receive Date: 20111123
  Receipt Date: 20121224
  Transmission Date: 20130627
  Serious: Yes (Hospitalization)
  Sender: FDA-Public Use
  Company Number: PHHO2008ES11839

PATIENT
  Age: 7 Year
  Sex: Male
  Weight: 29 kg

DRUGS (1)
  1. ACZ885 [Suspect]
     Indication: MUCKLE-WELLS SYNDROME
     Dosage: 58 mg, QD
     Route: 058
     Dates: start: 20080729

REACTIONS (8)
  - Appendicitis [Recovered/Resolved]
  - Immune system disorder [Recovered/Resolved]
  - Disease complication [Recovered/Resolved]
  - Abdominal abscess [Recovered/Resolved]
  - Pyrexia [Recovered/Resolved]
  - C-reactive protein increased [Not Recovered/Not Resolved]
  - Abdominal pain [Recovered/Resolved]
  - Vomiting [Recovered/Resolved]
